FAERS Safety Report 23843709 (Version 1)
Quarter: 2024Q2

REPORT INFORMATION
  Report Type: Spontaneous
  Country: FR (occurrence: FR)
  Receive Date: 20240510
  Receipt Date: 20240510
  Transmission Date: 20240716
  Serious: Yes (Other)
  Sender: FDA-Public Use
  Company Number: FR-BRISTOL-MYERS SQUIBB COMPANY-2024-071736

PATIENT
  Sex: Female

DRUGS (1)
  1. ELIQUIS [Suspect]
     Active Substance: APIXABAN
     Indication: Pulmonary embolism

REACTIONS (10)
  - Peripheral swelling [Unknown]
  - Joint swelling [Unknown]
  - Abdominal distension [Unknown]
  - Itching scar [Unknown]
  - Pruritus [Unknown]
  - Nasal oedema [Unknown]
  - Pruritus [Unknown]
  - Diarrhoea [Not Recovered/Not Resolved]
  - Abdominal rigidity [Not Recovered/Not Resolved]
  - Varicose vein [Not Recovered/Not Resolved]
